FAERS Safety Report 13396817 (Version 1)
Quarter: 2017Q2

REPORT INFORMATION
  Report Type: Spontaneous
  Country: US (occurrence: US)
  Receive Date: 20170403
  Receipt Date: 20170403
  Transmission Date: 20170830
  Serious: No
  Sender: FDA-Public Use
  Company Number: US-ASTRAZENECA-2017SE31693

PATIENT

DRUGS (4)
  1. OMEPRAZOLE. [Suspect]
     Active Substance: OMEPRAZOLE
     Dosage: DOSE AND FREQUENCY UNKNOWN
     Route: 048
  2. NEXIUM 24HR [Suspect]
     Active Substance: ESOMEPRAZOLE MAGNESIUM
     Dosage: DOSE AND FREQUENCY UNKNOWN
     Route: 048
  3. NEXIUM [Suspect]
     Active Substance: ESOMEPRAZOLE MAGNESIUM
     Dosage: DOSE AND FREQUENCY UNKNOWN
     Route: 048
  4. NEXIUM [Suspect]
     Active Substance: ESOMEPRAZOLE MAGNESIUM
     Dosage: GENERIC, DOSE AND FREQUENCY UNKNOWN
     Route: 048

REACTIONS (6)
  - Gastrooesophageal reflux disease [Unknown]
  - Intentional product use issue [Unknown]
  - Drug ineffective [Unknown]
  - No adverse event [Unknown]
  - Abdominal distension [Unknown]
  - Abdominal pain upper [Unknown]
